FAERS Safety Report 8963920 (Version 1)
Quarter: 2012Q4

REPORT INFORMATION
  Report Type: 
  Country: MX (occurrence: MX)
  Receive Date: 20121214
  Receipt Date: 20121214
  Transmission Date: 20130627
  Serious: Yes (Other)
  Sender: FDA-Public Use
  Company Number: MX-AMGEN-MEXSP2012079822

PATIENT
  Sex: Female

DRUGS (2)
  1. CINACALCET HCL [Suspect]
     Indication: PRODUCT USED FOR UNKNOWN INDICATION
  2. CALCITROL                          /00508501/ [Concomitant]

REACTIONS (1)
  - Hypercalcaemia [Unknown]
